FAERS Safety Report 14187729 (Version 1)
Quarter: 2017Q4

REPORT INFORMATION
  Report Type: Spontaneous
  Country: US (occurrence: US)
  Receive Date: 20171114
  Receipt Date: 20171114
  Transmission Date: 20180321
  Serious: No
  Sender: FDA-Public Use
  Company Number: US-BAUSCH-BL-2017-019899

PATIENT
  Sex: Male

DRUGS (2)
  1. RETIN-A [Suspect]
     Active Substance: TRETINOIN
     Indication: SCAR
     Dosage: YEARS AGO
     Route: 061
  2. RETIN-A [Suspect]
     Active Substance: TRETINOIN
     Route: 061
     Dates: start: 201706

REACTIONS (6)
  - Rash macular [Unknown]
  - Application site pain [Unknown]
  - Skin disorder [Unknown]
  - Application site exfoliation [Recovered/Resolved]
  - Skin discolouration [Unknown]
  - Drug ineffective [Unknown]

NARRATIVE: CASE EVENT DATE: 201706
